FAERS Safety Report 10265560 (Version 1)
Quarter: 2014Q2

REPORT INFORMATION
  Report Type: Spontaneous
  Country: US (occurrence: US)
  Receive Date: 20140627
  Receipt Date: 20140627
  Transmission Date: 20141212
  Serious: Yes (Life-Threatening, Other)
  Sender: FDA-Public Use
  Company Number: US-GLAXOSMITHKLINE-A1078250A

PATIENT
  Age: 76 Year
  Sex: Female

DRUGS (1)
  1. BENLYSTA [Suspect]
     Indication: PRODUCT USED FOR UNKNOWN INDICATION
     Dosage: 636.41MG SINGLE DOSE
     Route: 042
     Dates: start: 20140606, end: 20140606

REACTIONS (3)
  - Pruritus [Unknown]
  - Swollen tongue [Unknown]
  - Dysphagia [Unknown]
